FAERS Safety Report 8621879-3 (Version None)
Quarter: 2012Q3

REPORT INFORMATION
  Report Type: 
  Country: None (occurrence: None)
  Receive Date: 20120822
  Receipt Date: 20120822
  Transmission Date: 20120928
  Serious: No
  Sender: FDA-Public Use
  Company Number: None

PATIENT
  Age: 55 Year
  Sex: Female

DRUGS (2)
  1. PEGASYS [Suspect]
     Indication: HEPATITIS C
     Dosage: 180 MCG QW SQ
     Route: 058
     Dates: start: 20120626
  2. RIBAVIRIN [Suspect]
     Indication: HEPATITIS C
     Dosage: 600 MG BID PO
     Route: 048
     Dates: start: 20120601

REACTIONS (8)
  - GLOSSODYNIA [None]
  - ANAEMIA [None]
  - GASTRIC DISORDER [None]
  - VOMITING [None]
  - HYPOPHAGIA [None]
  - BACK PAIN [None]
  - FATIGUE [None]
  - RETCHING [None]
